FAERS Safety Report 8761539 (Version 2)
Quarter: 2012Q4

REPORT INFORMATION
  Report Type: Report from Study
  Country: AU (occurrence: AU)
  Receive Date: 20120829
  Receipt Date: 20121015
  Transmission Date: 20130627
  Serious: Yes (Other)
  Sender: FDA-Public Use
  Company Number: AU-BRISTOL-MYERS SQUIBB COMPANY-16877961

PATIENT
  Age: 52 Year
  Sex: Female
  Weight: 67 kg

DRUGS (8)
  1. ORENCIA [Suspect]
     Indication: RHEUMATOID ARTHRITIS
     Route: 042
     Dates: start: 20090918
  2. METHOTREXATE [Concomitant]
  3. PREDNISOLONE [Concomitant]
  4. FOLIC ACID [Concomitant]
  5. ENDEP [Concomitant]
  6. CRESTOR [Concomitant]
  7. BACTRIM [Concomitant]
     Dosage: Bactrim 160,1 DF: 2BD
  8. ACIDOPHILUS [Concomitant]
     Dosage: tab

REACTIONS (2)
  - Fall [Unknown]
  - Ankle fracture [Recovered/Resolved]
